FAERS Safety Report 10652982 (Version 3)
Quarter: 2015Q1

REPORT INFORMATION
  Report Type: Spontaneous
  Country: US (occurrence: US)
  Receive Date: 20141215
  Receipt Date: 20150227
  Transmission Date: 20150720
  Serious: No
  Sender: FDA-Public Use
  Company Number: US-GLAXOSMITHKLINE-US2014GSK035560

PATIENT
  Age: 50 Year
  Sex: Female

DRUGS (4)
  1. QNASL [Concomitant]
     Active Substance: BECLOMETHASONE DIPROPIONATE
  2. ALBUTEROL INHALATIONAL POWDER [Concomitant]
     Active Substance: ALBUTEROL
  3. SIMVASTATIN. [Concomitant]
     Active Substance: SIMVASTATIN
  4. ADVAIR DISKUS [Suspect]
     Active Substance: FLUTICASONE PROPIONATE\SALMETEROL XINAFOATE
     Indication: ASTHMA
     Dosage: 1 PUFF(S), BID

REACTIONS (6)
  - Asthma [Recovered/Resolved]
  - Dyspnoea [Recovered/Resolved]
  - Inhalation therapy [Recovered/Resolved]
  - Anxiety [Recovered/Resolved]
  - Chest discomfort [Recovered/Resolved]
  - Product quality issue [Recovered/Resolved]

NARRATIVE: CASE EVENT DATE: 201411
